FAERS Safety Report 13478205 (Version 3)
Quarter: 2018Q1

REPORT INFORMATION
  Report Type: Report from Study
  Country: US (occurrence: US)
  Receive Date: 20170424
  Receipt Date: 20180115
  Transmission Date: 20180508
  Serious: No
  Sender: FDA-Public Use
  Company Number: US-AMGEN-USASL2017021215

PATIENT
  Age: 69 Year
  Sex: Male
  Weight: 112 kg

DRUGS (1)
  1. REPATHA [Suspect]
     Active Substance: EVOLOCUMAB
     Indication: HYPERCHOLESTEROLAEMIA
     Dosage: 140 MG, Q2WK
     Route: 058

REACTIONS (3)
  - Drug dose omission [Unknown]
  - Injection site haemorrhage [Unknown]
  - Drug administration error [Unknown]

NARRATIVE: CASE EVENT DATE: 20170207
